FAERS Safety Report 6376233-4 (Version None)
Quarter: 2009Q3

REPORT INFORMATION
  Report Type: 
  Country: None (occurrence: None)
  Receive Date: 20090925
  Receipt Date: 20090921
  Transmission Date: 20100115
  Serious: Yes (Hospitalization)
  Sender: FDA-Public Use
  Company Number: US-BIOGENIDEC-2009BI014443

PATIENT
  Age: 67 Year
  Sex: Male

DRUGS (22)
  1. TYSABRI [Suspect]
     Indication: MULTIPLE SCLEROSIS
     Route: 042
     Dates: start: 20080612, end: 20090106
  2. ACETAMINOPHEN [Concomitant]
  3. CALCIUM CARBONATE [Concomitant]
  4. PROZAC [Concomitant]
  5. METOPROLOL [Concomitant]
  6. LISINOPRIL [Concomitant]
     Route: 048
     Dates: start: 20090101
  7. ZOCOR [Concomitant]
  8. CYANOCOBALAMIN [Concomitant]
  9. NIACIN [Concomitant]
  10. METAMUCIL [Concomitant]
  11. GABAPENTIN [Concomitant]
  12. FOLIC ACID [Concomitant]
  13. PROTONIX [Concomitant]
  14. ZANAFLEX [Concomitant]
  15. NORTRIPTYLINE HCL [Concomitant]
  16. FLEXERIL [Concomitant]
  17. OXYCODONE [Concomitant]
  18. TAMSULOSIN HCL [Concomitant]
  19. LORAZEPAM [Concomitant]
  20. FUROSEMIDE [Concomitant]
  21. FENTANYL TRANSDERMAL SYSTEM [Concomitant]
  22. HYDROCORTISONE [Concomitant]
     Dates: end: 20081001

REACTIONS (2)
  - ENTEROBACTER SEPSIS [None]
  - MUSCULOSKELETAL PAIN [None]
